FAERS Safety Report 9621387 (Version 3)
Quarter: 2014Q1

REPORT INFORMATION
  Report Type: Spontaneous
  Country: US (occurrence: US)
  Receive Date: 20131015
  Receipt Date: 20140130
  Transmission Date: 20141002
  Serious: Yes (Other)
  Sender: FDA-Public Use
  Company Number: US-PFIZER INC-2013291749

PATIENT
  Age: 79 Year
  Sex: Female
  Weight: 95.7 kg

DRUGS (23)
  1. EFFEXOR XR [Suspect]
     Indication: DEPRESSION
     Dosage: 225 MG (BY TAKING 150MG CAPSULE IN THE MORNING AND 75MG CAPSULE AT NIGHT)
     Route: 048
     Dates: end: 201311
  2. EFFEXOR XR [Suspect]
     Dosage: 300 MG (TAKING 150MG IN MORNING, 75MG IN AFTERNOON, 75MG AT NIGHT)
     Route: 048
     Dates: start: 201311
  3. ATENOLOL [Suspect]
     Dosage: UNK
     Dates: end: 20131105
  4. METFORMIN [Concomitant]
     Dosage: 1000 MG, 2X/DAY
  5. ASPIRIN [Concomitant]
     Dosage: 325 MG, 1X/DAY
  6. CITRACAL [Concomitant]
     Dosage: UNK, 2X/DAY
  7. FUROSEMIDE [Concomitant]
     Dosage: 20 MG, 2X/DAY
  8. POTASSIUM CHLORIDE [Concomitant]
     Dosage: 20 MEQ, 1X/DAY
  9. AMLODIPINE [Concomitant]
     Dosage: 5 MG, 1X/DAY
  10. OMEGA 3 [Concomitant]
     Dosage: UNK, 2X/DAY
  11. GLIMEPIRIDE [Concomitant]
     Dosage: 4 MG, 2X/DAY
  12. SIMVASTATIN [Concomitant]
     Dosage: 20 MG, 1X/DAY AT BEDTIME
  13. RANITIDINE [Concomitant]
     Dosage: 300 MG, 1X/DAY AT BEDTIME
  14. BENICAR HCT [Concomitant]
     Dosage: OLMESARTAN 40 MG/HYDROCHLOROTHIAZIDE 12.5 MG, 1X/DAY
     Route: 048
  15. FENOFIBRATE [Concomitant]
     Dosage: 134 MG, 1X/DAY AT BEDTIME
  16. HYDROMORPHONE [Concomitant]
     Dosage: 4 MG, AS NEEDED
  17. ONDANSETRON [Concomitant]
     Indication: NAUSEA
     Dosage: 4 MG, 4X/DAY
     Route: 048
  18. ONDANSETRON [Concomitant]
     Indication: VOMITING
  19. NOVOLOG INSULIN [Concomitant]
     Indication: BLOOD GLUCOSE ABNORMAL
     Dosage: 40 UNITS, 2X/DAY
  20. VICTOZA [Concomitant]
     Dosage: UNK, 1X/DAY
  21. ACIPHEX [Concomitant]
     Dosage: 20 MG, 2X/DAY
  22. LEVOTHYROXINE [Concomitant]
     Dosage: 100 UG, 1X/DAY BEFORE BREAKFAST
     Route: 048
  23. SUCRALFATE [Concomitant]
     Dosage: 1 G, 1X/DAY
     Route: 048

REACTIONS (5)
  - Heart rate decreased [Not Recovered/Not Resolved]
  - Circumstance or information capable of leading to medication error [Unknown]
  - Depression [Unknown]
  - Memory impairment [Unknown]
  - Drug effect incomplete [Unknown]
